FAERS Safety Report 8385947-6 (Version None)
Quarter: 2012Q2

REPORT INFORMATION
  Report Type: 
  Country: None (occurrence: None)
  Receive Date: 20120523
  Receipt Date: 20120509
  Transmission Date: 20120825
  Serious: Yes (Disabling, Other)
  Sender: FDA-Public Use
  Company Number: AUR-APL-2012-02181

PATIENT
  Age: 61 Year
  Sex: Female
  Weight: 92.0802 kg

DRUGS (3)
  1. GABAPENTIN [Suspect]
     Indication: SPINAL PAIN
     Dosage: 3 DOSAGE FORMS (1 DOSAGE FORMS, 3 IN 1 D), ORAL
     Route: 048
     Dates: start: 20110314, end: 20120316
  2. TIAZANIDINE (TIAZANIDINE) [Concomitant]
  3. METAXALONE [Concomitant]

REACTIONS (13)
  - CHOLELITHIASIS [None]
  - BLOOD URINE PRESENT [None]
  - MUSCLE SPASMS [None]
  - FEELING ABNORMAL [None]
  - NO THERAPEUTIC RESPONSE [None]
  - INCONTINENCE [None]
  - ABDOMINAL PAIN UPPER [None]
  - ABASIA [None]
  - DIARRHOEA [None]
  - LACTOSE INTOLERANCE [None]
  - ARTERIAL OCCLUSIVE DISEASE [None]
  - RENAL HAEMORRHAGE [None]
  - CHEST PAIN [None]
